FAERS Safety Report 5393448-2 (Version None)
Quarter: 2007Q3

REPORT INFORMATION
  Report Type: 
  Country: None (occurrence: None)
  Receive Date: 20070723
  Receipt Date: 20060531
  Transmission Date: 20080115
  Serious: No
  Sender: FDA-Public Use
  Company Number: A0607454A

PATIENT
  Age: 46 Year
  Sex: Female

DRUGS (5)
  1. AVANDIA [Suspect]
     Dosage: 2MG PER DAY
     Route: 048
  2. AVAPRO [Concomitant]
  3. HYDROCHLOROTHIAZIDE [Concomitant]
  4. LIPITOR [Concomitant]
  5. LEVOXYL [Concomitant]

REACTIONS (1)
  - BLOOD GLUCOSE INCREASED [None]
